FAERS Safety Report 9171140 (Version 1)
Quarter: 2013Q1

REPORT INFORMATION
  Report Type: Spontaneous
  Country: IE (occurrence: None)
  Receive Date: 20130315
  Receipt Date: 20130315
  Transmission Date: 20140127
  Serious: Yes (Death, Hospitalization)
  Sender: FDA-Public Use
  Company Number: 220706

PATIENT
  Sex: Female
  Weight: 120.8 kg

DRUGS (3)
  1. INNOHEP [Suspect]
     Indication: PULMONARY EMBOLISM
  2. PROTAMINSULFAT LEO [Suspect]
     Indication: ABDOMINAL WALL HAEMATOMA
  3. ASPIRIN(ACETYLSALICYLIC ACID) [Concomitant]

REACTIONS (4)
  - Drug ineffective [None]
  - Disseminated intravascular coagulation [None]
  - Abdominal wall haematoma [None]
  - Enteritis infectious [None]
